FAERS Safety Report 19814128 (Version 1)
Quarter: 2021Q3

REPORT INFORMATION
  Report Type: Spontaneous
  Country: DE (occurrence: DE)
  Receive Date: 20210910
  Receipt Date: 20210910
  Transmission Date: 20211014
  Serious: Yes (Congenital Anomaly, Other)
  Sender: FDA-Public Use
  Company Number: DE-TEVA-2021-DE-1950259

PATIENT
  Age: 1 Day
  Sex: Female

DRUGS (9)
  1. AZITHROMYCIN ANHYDROUS. [Concomitant]
     Active Substance: AZITHROMYCIN ANHYDROUS
     Indication: RESPIRATORY TRACT INFECTION BACTERIAL
     Dosage: 500 [MG / D (UP TO 250)]; ADDITIONAL INFO:11.4. ? 12.3. GESTATIONAL WEEK
     Route: 064
     Dates: start: 20200211, end: 20200217
  2. XYLOMETAZOLINE [Concomitant]
     Active Substance: XYLOMETAZOLINE
     Indication: RESPIRATORY TRACT INFECTION BACTERIAL
     Dosage: ADDITIONAL INFO:11.4. ? 12.3. GESTATIONAL WEEK
     Route: 064
     Dates: start: 20200211, end: 20200217
  3. NIFEDIPINE. [Concomitant]
     Active Substance: NIFEDIPINE
     Indication: PREMATURE LABOUR
     Dosage: ADDITIONAL INFO: 27. ? 27. GESTATIONAL WEEK
     Route: 064
     Dates: start: 20200529, end: 20200529
  4. PREDNISOLONE. [Suspect]
     Active Substance: PREDNISOLONE
     Indication: PROPHYLAXIS OF ABORTION
     Dosage: 15 [MG / D (UP TO 2.5)] / INITIALLY 15MG / D, FROM GW 11: 10 MG / D, THEN FURTHER REDUCTION; ADDITIO
     Route: 064
     Dates: start: 20200109, end: 20200229
  5. AMBROXOL [Concomitant]
     Active Substance: AMBROXOL
     Indication: PAIN
     Dosage: 90 [MG/D (3 X 30 MG) ]; ADDITIONAL INFO:11.4. ? 12.3. GESTATIONAL WEEK
     Route: 064
     Dates: start: 20200211, end: 20200217
  6. CLEXANE [Concomitant]
     Active Substance: ENOXAPARIN SODIUM
     Indication: METHYLENETETRAHYDROFOLATE REDUCTASE GENE MUTATION
     Dosage: 40 [MG/D ]; ADDITIONAL INFO:0. ? 27. GESTATIONAL WEEK
     Route: 064
     Dates: start: 20191122, end: 20200529
  7. FOLSAURE?RATIOPHARM 5 MG [Concomitant]
     Active Substance: FOLIC ACID
     Indication: PROPHYLAXIS OF NEURAL TUBE DEFECT
     Dosage: 5 [MG/D ]; ADDITIONAL INFO:0. ? 27. GESTATIONAL WEEK
     Route: 064
     Dates: start: 20191122, end: 20200529
  8. PARACETAMOL [Concomitant]
     Active Substance: ACETAMINOPHEN
     Indication: RESPIRATORY TRACT INFECTION BACTERIAL
     Dosage: 1000 [MG / D (UP TO 500, IF NECESSARY)]; ADDITIONAL INFO:11.4. ? 12. GESTATIONAL WEEK
     Route: 064
     Dates: start: 20200211, end: 20200214
  9. ACC [Suspect]
     Active Substance: ACETYLCYSTEINE
     Indication: RESPIRATORY TRACT INFECTION BACTERIAL
     Dosage: ADDITIONAL INFO: 11.4. ? 12.3. GESTATIONAL WEEK
     Route: 064
     Dates: start: 20200211, end: 20200217

REACTIONS (6)
  - Neonatal respiratory distress syndrome [Recovered/Resolved]
  - Atrial septal defect [Unknown]
  - Congenital umbilical hernia [Unknown]
  - Patent ductus arteriosus [Recovered/Resolved]
  - Premature baby [Unknown]
  - Foetal exposure during pregnancy [Unknown]

NARRATIVE: CASE EVENT DATE: 20200529
